FAERS Safety Report 11252679 (Version 1)
Quarter: 2015Q3

REPORT INFORMATION
  Report Type: Spontaneous
  Country: US (occurrence: US)
  Receive Date: 20150708
  Receipt Date: 20150708
  Transmission Date: 20151125
  Serious: Yes (Other)
  Sender: FDA-Public Use
  Company Number: US-ELI_LILLY_AND_COMPANY-US201406001642

PATIENT
  Age: 49 Year
  Sex: Female

DRUGS (8)
  1. VITAMIN B12 [Concomitant]
     Active Substance: CYANOCOBALAMIN
     Dosage: 1000 UG, UNK
     Route: 042
     Dates: start: 20140327, end: 20140513
  2. DOCETAXEL. [Concomitant]
     Active Substance: DOCETAXEL
  3. CORTICOSTEROID NOS [Concomitant]
     Active Substance: CORTICOSTEROID NOS
     Dosage: 4 MG, BID
     Dates: start: 20140320
  4. ALIMTA [Suspect]
     Active Substance: PEMETREXED DISODIUM
     Dosage: 500 MG, EVERY THREE WEEKS
     Route: 065
     Dates: start: 20140610
  5. CISPLATIN. [Concomitant]
     Active Substance: CISPLATIN
  6. ALIMTA [Suspect]
     Active Substance: PEMETREXED DISODIUM
     Indication: LUNG CARCINOMA CELL TYPE UNSPECIFIED STAGE IV
     Dosage: 500 MG/M2, EVERY THREE WEEKS
     Route: 065
     Dates: start: 20140306, end: 20140513
  7. ALIMTA [Suspect]
     Active Substance: PEMETREXED DISODIUM
     Dosage: 500 MG/M2, EVERY THREE WEEKS
     Route: 065
     Dates: start: 20140603
  8. FOLIC ACID. [Concomitant]
     Active Substance: FOLIC ACID
     Dosage: 1 MG, UNK
     Dates: start: 20140320

REACTIONS (3)
  - Malaise [Recovered/Resolved]
  - Infection [Recovered/Resolved]
  - Malignant neoplasm progression [Unknown]
